FAERS Safety Report 13871046 (Version 6)
Quarter: 2017Q4

REPORT INFORMATION
  Report Type: Spontaneous
  Country: US (occurrence: US)
  Receive Date: 20170816
  Receipt Date: 20171006
  Transmission Date: 20180320
  Serious: Yes (Other)
  Sender: FDA-Public Use
  Company Number: US-LUNDBECK-DKLU2034752

PATIENT
  Age: 75 Year
  Sex: Female
  Weight: 71 kg

DRUGS (10)
  1. NORTHERA [Suspect]
     Active Substance: DROXIDOPA
     Dosage: TITRATION COMPLETE
     Route: 065
     Dates: end: 2017
  2. NORTHERA [Suspect]
     Active Substance: DROXIDOPA
     Route: 065
     Dates: start: 2017
  3. NORTHERA [Suspect]
     Active Substance: DROXIDOPA
     Route: 065
     Dates: end: 2017
  4. NORTHERA [Suspect]
     Active Substance: DROXIDOPA
     Route: 048
  5. NORTHERA [Suspect]
     Active Substance: DROXIDOPA
     Route: 048
  6. NORTHERA [Suspect]
     Active Substance: DROXIDOPA
     Route: 048
     Dates: start: 20170719
  7. NORTHERA [Suspect]
     Active Substance: DROXIDOPA
     Route: 065
     Dates: start: 2017
  8. NORTHERA [Suspect]
     Active Substance: DROXIDOPA
     Dosage: SCHEDULE B AND TITRATION COMPLETE
     Route: 065
     Dates: start: 20170721
  9. NORTHERA [Suspect]
     Active Substance: DROXIDOPA
     Indication: ORTHOSTATIC HYPOTENSION
     Dosage: SCHEDULE B TITRATING
     Route: 065
     Dates: start: 20170721
  10. NORTHERA [Suspect]
     Active Substance: DROXIDOPA
     Dosage: SCHEDULE B TITRATING
     Route: 065
     Dates: end: 2017

REACTIONS (13)
  - Gastric mucosal hypertrophy [Unknown]
  - Weight decreased [Unknown]
  - Sluggishness [Unknown]
  - Fatigue [Unknown]
  - Blood pressure increased [Unknown]
  - Headache [Unknown]
  - Lethargy [Unknown]
  - Abdominal pain upper [Unknown]
  - Dizziness [Unknown]
  - Blood pressure fluctuation [Unknown]
  - Disorientation [Unknown]
  - Nausea [Unknown]
  - Blood pressure decreased [Unknown]

NARRATIVE: CASE EVENT DATE: 20170725
